FAERS Safety Report 16006683 (Version 3)
Quarter: 2019Q1

REPORT INFORMATION
  Report Type: Spontaneous
  Country: CH (occurrence: CH)
  Receive Date: 20190226
  Receipt Date: 20190323
  Transmission Date: 20190418
  Serious: Yes (Hospitalization)
  Sender: FDA-Public Use
  Company Number: CH-MYLANLABS-2019M1016830

PATIENT
  Age: 36 Year
  Sex: Female

DRUGS (5)
  1. METAMIZOL                          /06276701/ [Suspect]
     Active Substance: METAMIZOLE
     Indication: PYREXIA
     Dosage: UNK
  2. BRUFEN RETARD [Suspect]
     Active Substance: IBUPROFEN
     Indication: ANTIPYRESIS
     Dosage: UNK
  3. BRUFEN RETARD [Suspect]
     Active Substance: IBUPROFEN
     Dosage: 800 MILLIGRAM, BID
     Dates: start: 20170924, end: 20170929
  4. PARACETAMOL [Suspect]
     Active Substance: ACETAMINOPHEN
     Indication: PYREXIA
     Dosage: UNK
  5. DACLIZUMAB [Suspect]
     Active Substance: DACLIZUMAB
     Indication: PRODUCT USED FOR UNKNOWN INDICATION
     Dosage: UNK

REACTIONS (3)
  - Renal failure [Unknown]
  - Drug ineffective [Recovering/Resolving]
  - Hepatosplenomegaly [Unknown]
